APPROVED DRUG PRODUCT: THEOCLEAR-80
Active Ingredient: THEOPHYLLINE
Strength: 80MG/15ML
Dosage Form/Route: SYRUP;ORAL
Application: A087095 | Product #001
Applicant: CENTRAL PHARMACEUTICALS INC
Approved: Mar 1, 1982 | RLD: No | RS: No | Type: DISCN